FAERS Safety Report 6264457-6 (Version None)
Quarter: 2009Q3

REPORT INFORMATION
  Report Type: 
  Country: None (occurrence: None)
  Receive Date: 20090708
  Receipt Date: 20090708
  Transmission Date: 20100115
  Serious: No
  Sender: FDA-Public Use
  Company Number: None

PATIENT
  Age: 65 Year
  Sex: Female
  Weight: 74.8435 kg

DRUGS (1)
  1. TRAMADOL HCL [Suspect]
     Indication: ANALGESIA
     Dosage: 1 TAB @ 6HRS ORAL
     Route: 048
     Dates: start: 20090624

REACTIONS (5)
  - BALANCE DISORDER [None]
  - FEELING ABNORMAL [None]
  - HYPERHIDROSIS [None]
  - VISUAL IMPAIRMENT [None]
  - VOMITING [None]
